FAERS Safety Report 5705062-7 (Version None)
Quarter: 2008Q2

REPORT INFORMATION
  Report Type: 
  Country: None (occurrence: None)
  Receive Date: 20080409
  Receipt Date: 20080402
  Transmission Date: 20081010
  Serious: Yes (Death, Hospitalization, Other)
  Sender: FDA-Public Use
  Company Number: 163-21880-07120981

PATIENT
  Age: 77 Year
  Sex: Male

DRUGS (3)
  1. REVLIMID [Suspect]
     Indication: MYELOFIBROSIS
     Dosage: 10 MG, 1 IN 1 D, ORAL
     Route: 048
     Dates: start: 20070504, end: 20071101
  2. ASPIRIN [Concomitant]
  3. FLOMAX [Concomitant]

REACTIONS (4)
  - BONE MARROW FAILURE [None]
  - HYPOTENSION [None]
  - PANCYTOPENIA [None]
  - SEPSIS [None]
